FAERS Safety Report 22618380 (Version 1)
Quarter: 2023Q2

REPORT INFORMATION
  Report Type: Spontaneous
  Country: US (occurrence: US)
  Receive Date: 20230620
  Receipt Date: 20230620
  Transmission Date: 20230722
  Serious: No
  Sender: FDA-Public Use
  Company Number: US-PFM-2022-08293

PATIENT
  Age: 0 Year
  Sex: Male

DRUGS (2)
  1. HEMANGEOL [Suspect]
     Active Substance: PROPRANOLOL HYDROCHLORIDE
     Indication: Haemangioma
     Dosage: 1.8 ML, BID (2/DAY)
     Route: 048
     Dates: start: 202210
  2. HEMANGEOL [Suspect]
     Active Substance: PROPRANOLOL HYDROCHLORIDE
     Dosage: DECREASED DOSE AND FREQUENCY TO ONCE DAILY
     Route: 048

REACTIONS (3)
  - Restlessness [Unknown]
  - Irritability [Unknown]
  - Sleep disorder [Unknown]

NARRATIVE: CASE EVENT DATE: 20221001
